FAERS Safety Report 4589239-2 (Version None)
Quarter: 2005Q1

REPORT INFORMATION
  Report Type: 
  Country: None (occurrence: None)
  Receive Date: 20050223
  Receipt Date: 20050218
  Transmission Date: 20050727
  Serious: Yes (Hospitalization)
  Sender: FDA-Public Use
  Company Number: FR-RB-1337-2005

PATIENT
  Sex: Female

DRUGS (2)
  1. BUPRENORPHINE HCL [Suspect]
     Indication: POLYSUBSTANCE DEPENDENCE
     Dosage: UNKNOWN DOSE
     Route: 042
  2. BUPRENORPHINE HCL [Suspect]
     Route: 060
     Dates: start: 20050208

REACTIONS (2)
  - INTENTIONAL MISUSE [None]
  - RENAL FAILURE [None]
